FAERS Safety Report 9649226 (Version 2)
Quarter: 2015Q2

REPORT INFORMATION
  Report Type: Spontaneous
  Country: TR (occurrence: TR)
  Receive Date: 20131028
  Receipt Date: 20150512
  Transmission Date: 20150821
  Serious: Yes (Hospitalization, Other)
  Sender: FDA-Public Use
  Company Number: PHHY2013TR117081

PATIENT
  Age: 18 Year
  Sex: Female

DRUGS (2)
  1. PROPAFENONE. [Suspect]
     Active Substance: PROPAFENONE
     Indication: SUICIDE ATTEMPT
     Dosage: 30 DF, UNK
     Route: 065
  2. CAPTOPRIL. [Suspect]
     Active Substance: CAPTOPRIL
     Indication: SUICIDE ATTEMPT
     Dosage: 20 DF, UNK
     Route: 065

REACTIONS (11)
  - Pulse absent [Recovered/Resolved]
  - Haemodynamic instability [Recovered/Resolved]
  - Suicide attempt [Recovered/Resolved]
  - Loss of consciousness [Recovered/Resolved]
  - Pupils unequal [Recovered/Resolved]
  - Rhythm idioventricular [Recovered/Resolved]
  - Cardiac arrest [Recovered/Resolved]
  - Electrocardiogram QRS complex prolonged [Recovered/Resolved]
  - Intentional overdose [Recovered/Resolved]
  - Apnoea [Recovered/Resolved]
  - Ventricular arrhythmia [Recovered/Resolved]
